FAERS Safety Report 5876108-0 (Version None)
Quarter: 2008Q3

REPORT INFORMATION
  Report Type: 
  Country: None (occurrence: None)
  Receive Date: 20080910
  Receipt Date: 20080905
  Transmission Date: 20090109
  Serious: Yes (Life-Threatening, Hospitalization)
  Sender: FDA-Public Use
  Company Number: JP-AVENTIS-200810361JP

PATIENT
  Age: 96 Year
  Sex: Female
  Weight: 36 kg

DRUGS (5)
  1. AMARYL [Suspect]
     Indication: DIABETES MELLITUS
     Route: 048
     Dates: start: 20070411, end: 20080119
  2. CLARITHROMYCIN [Suspect]
     Indication: BRONCHITIS
     Route: 048
     Dates: start: 20080115, end: 20080119
  3. ARICEPT [Concomitant]
     Indication: DEMENTIA
     Route: 048
     Dates: end: 20080119
  4. AMLODIPINE BESYLATE [Concomitant]
     Indication: HYPERTENSION
     Route: 048
     Dates: end: 20080119
  5. LANSOPRAZOLE [Concomitant]
     Route: 048
     Dates: end: 20080119

REACTIONS (2)
  - DRUG INTERACTION [None]
  - HYPOGLYCAEMIC COMA [None]
